FAERS Safety Report 9860909 (Version 2)
Quarter: 2014Q1

REPORT INFORMATION
  Report Type: Spontaneous
  Country: US (occurrence: US)
  Receive Date: 20140202
  Receipt Date: 20140202
  Transmission Date: 20141002
  Serious: No
  Sender: FDA-Public Use
  Company Number: US-ALLERGAN-1302093US

PATIENT
  Age: 58 Year
  Sex: Male

DRUGS (9)
  1. BOTOX [Suspect]
     Indication: BLEPHAROSPASM
     Dosage: UNK, SINGLE
     Route: 030
     Dates: start: 201210, end: 201210
  2. BOTOX [Suspect]
     Indication: DYSTONIA
     Dosage: UNK, SINGLE
     Route: 030
     Dates: start: 201204, end: 201204
  3. BOTOX [Suspect]
     Indication: TORTICOLLIS
     Dosage: UNK, SINGLE
     Route: 030
     Dates: start: 2011, end: 2011
  4. BOTOX [Suspect]
     Indication: SKIN WRINKLING
     Dosage: 30 UNITS, SINGLE
     Route: 030
     Dates: start: 20120320, end: 20120320
  5. BOTOX [Suspect]
     Indication: SKIN WRINKLING
     Dosage: 105 UNITS, SINGLE
     Route: 030
     Dates: start: 20120611, end: 20120611
  6. BOTOX [Suspect]
     Indication: SKIN WRINKLING
     Dosage: 105 UNITS, SINGLE
     Route: 030
     Dates: start: 201212, end: 201212
  7. BOTOX [Suspect]
     Indication: SKIN WRINKLING
     Dosage: 65 UNITS, SINGLE
     Route: 030
     Dates: start: 201301, end: 201301
  8. MUSCLE RELAXANTS [Suspect]
     Indication: PRODUCT USED FOR UNKNOWN INDICATION
     Route: 048
  9. ASA [Concomitant]
     Indication: PAIN
     Dosage: 325 MG, PRN
     Route: 048

REACTIONS (18)
  - Exfoliative rash [Unknown]
  - Off label use [Unknown]
  - Drug ineffective [Unknown]
  - Rash erythematous [Unknown]
  - Rash [Unknown]
  - Rash [Unknown]
  - Rash [Unknown]
  - Rash [Unknown]
  - Rash [Unknown]
  - Pruritus [Unknown]
  - Pruritus [Unknown]
  - Pruritus [Unknown]
  - Pruritus [Unknown]
  - Urticaria [Unknown]
  - Urticaria [Unknown]
  - Urticaria [Unknown]
  - Urticaria [Unknown]
  - Eye swelling [Unknown]
